FAERS Safety Report 4497645-X (Version None)
Quarter: 2004Q4

REPORT INFORMATION
  Report Type: 
  Country: None (occurrence: None)
  Receive Date: 20041103
  Receipt Date: 20041019
  Transmission Date: 20050328
  Serious: Yes (Death)
  Sender: FDA-Public Use
  Company Number: US-JNJFOC-20041005806

PATIENT
  Age: 47 Year
  Sex: Female

DRUGS (5)
  1. FENTANYL [Suspect]
     Indication: INTENTIONAL MISUSE
     Route: 062
  2. TRAMADOL [Concomitant]
  3. FLUOXETINE [Concomitant]
  4. PROMETHAZINE [Concomitant]
  5. GABAPENTIN [Concomitant]

REACTIONS (6)
  - ACCIDENTAL DEATH [None]
  - COMA [None]
  - DRUG SCREEN POSITIVE [None]
  - INTENTIONAL MISUSE [None]
  - MEDICATION ERROR [None]
  - SELF-MEDICATION [None]
